FAERS Safety Report 9305888 (Version 2)
Quarter: 2013Q2

REPORT INFORMATION
  Report Type: Spontaneous
  Country: US (occurrence: US)
  Receive Date: 20130523
  Receipt Date: 20130620
  Transmission Date: 20140414
  Serious: Yes (Other)
  Sender: FDA-Public Use
  Company Number: US-PFIZER INC-2013156622

PATIENT
  Age: 27 Year
  Sex: Female
  Weight: 52.15 kg

DRUGS (2)
  1. DEPO-PROVERA [Suspect]
     Indication: DYSMENORRHOEA
     Dosage: 150 MG, EVERY 3 MONTHS
     Route: 030
     Dates: start: 200601
  2. DEPO-PROVERA [Suspect]
     Indication: MENORRHAGIA

REACTIONS (1)
  - Osteopenia [Unknown]
